FAERS Safety Report 9310476 (Version 1)
Quarter: 2013Q2

REPORT INFORMATION
  Report Type: Spontaneous
  Country: US (occurrence: US)
  Receive Date: 20130527
  Receipt Date: 20130527
  Transmission Date: 20140414
  Serious: No
  Sender: FDA-Public Use
  Company Number: US-PFIZER INC-2013136226

PATIENT
  Age: 45 Year
  Sex: Male

DRUGS (14)
  1. VIAGRA [Suspect]
     Dosage: 100 MG, DAILY (1/2 HR. PRIOR TO INTERCOURSE)]
     Route: 048
  2. NORCO [Concomitant]
     Indication: PAIN
     Dosage: 5.325: 1-2 TABLET FOUR TIMES DAILY AS NEEDED
     Route: 048
  3. PAMELOR [Concomitant]
     Indication: INSOMNIA
     Dosage: 50 MG, AT BED TIME
     Route: 048
  4. PAMELOR [Concomitant]
     Indication: PAIN IN EXTREMITY
  5. AVITA [Concomitant]
     Indication: RASH
     Dosage: 0.1 %, UNK
     Route: 061
  6. NAPHCON-A [Concomitant]
     Indication: OCULAR HYPERAEMIA
     Dosage: 1 GTT, 4X/DAY [0.025-0.3% OPTHALMIC SOL. 1 DROP INTO BOTH EYES 4 TIMES DAILY]
     Route: 047
  7. MOBIC [Concomitant]
     Indication: JOINT INJURY
     Dosage: 15 MG, DAILY
     Route: 048
  8. MOBIC [Concomitant]
     Indication: PAIN
  9. DRISDOL [Concomitant]
     Dosage: 50000 IU, [EVERY MON, WED AND FRI]
     Route: 048
  10. FOLIC ACID [Concomitant]
     Dosage: 1 MG, DAILY
     Route: 048
  11. THERAGRAN-M [Concomitant]
     Dosage: 1 DF, DAILY
     Route: 048
  12. VITAMIN B12 [Concomitant]
     Dosage: 1000 UG, DAILY
     Route: 048
  13. GENTEAL [Concomitant]
     Dosage: 1 GTT, AS NEEDED [0.3 %, PLACE 1 DROP INTO BOTH EYES EVERY FOUR HOURS AS NEEDED]
     Route: 047
  14. VITAMIN B1 [Concomitant]
     Dosage: 100 MG, DAILY
     Route: 048

REACTIONS (1)
  - Drug ineffective [Unknown]
